FAERS Safety Report 4818989-5 (Version None)
Quarter: 2005Q4

REPORT INFORMATION
  Report Type: 
  Country: None (occurrence: None)
  Receive Date: 20051102
  Receipt Date: 20051102
  Transmission Date: 20060501
  Serious: Yes (Hospitalization)
  Sender: FDA-Public Use
  Company Number: None

PATIENT
  Age: 48 Year
  Sex: Female
  Weight: 113.3993 kg

DRUGS (2)
  1. IMITREX [Suspect]
     Dosage: 1 DOSE
  2. IBUPROFEN [Concomitant]

REACTIONS (3)
  - ASPIRATION [None]
  - GRAND MAL CONVULSION [None]
  - PNEUMONIA [None]
